FAERS Safety Report 9413693 (Version 2)
Quarter: 2013Q3

REPORT INFORMATION
  Report Type: Spontaneous
  Country: US (occurrence: US)
  Receive Date: 20130722
  Receipt Date: 20130731
  Transmission Date: 20140515
  Serious: Yes (Hospitalization)
  Sender: FDA-Public Use
  Company Number: US-BAXTER-2013BAX028146

PATIENT
  Age: 55 Year
  Sex: Female

DRUGS (1)
  1. DIANEAL PD2 (ULTRABAG) [Suspect]
     Indication: PERITONEAL DIALYSIS
     Route: 033
     Dates: start: 2008

REACTIONS (3)
  - Mitral valve disease [Recovered/Resolved]
  - Tricuspid valve disease [Recovered/Resolved]
  - Pulmonary oedema [Recovered/Resolved]
